FAERS Safety Report 7740063-9 (Version None)
Quarter: 2011Q3

REPORT INFORMATION
  Report Type: 
  Country: None (occurrence: None)
  Receive Date: 20110909
  Receipt Date: 20110830
  Transmission Date: 20111222
  Serious: Yes (Life-Threatening)
  Sender: FDA-Public Use
  Company Number: JP-JNJFOC-20110800445

PATIENT
  Age: 70 Year
  Sex: Male

DRUGS (2)
  1. FENTANYL CITRATE [Suspect]
     Route: 062
  2. FENTANYL CITRATE [Suspect]
     Indication: PAIN
     Route: 062

REACTIONS (4)
  - PALPITATIONS [None]
  - WITHDRAWAL SYNDROME [None]
  - OVERDOSE [None]
  - THIRST [None]
